FAERS Safety Report 5126377-X (Version None)
Quarter: 2006Q4

REPORT INFORMATION
  Report Type: 
  Country: None (occurrence: None)
  Receive Date: 20061010
  Receipt Date: 20060927
  Transmission Date: 20070319
  Serious: Yes (Other)
  Sender: FDA-Public Use
  Company Number: US-2006-029526

PATIENT
  Age: 29 Year
  Sex: Female

DRUGS (2)
  1. FLUDARA [Suspect]
     Indication: ACUTE MYELOID LEUKAEMIA
     Dosage: INTRAVENOUS
     Route: 042
     Dates: start: 19910401, end: 19920401
  2. CYTARABINE [Suspect]
     Indication: ACUTE MYELOID LEUKAEMIA
     Dates: start: 19910401, end: 19920401

REACTIONS (9)
  - ABORTION SPONTANEOUS [None]
  - ACUTE MYELOID LEUKAEMIA RECURRENT [None]
  - AUTOLOGOUS BONE MARROW TRANSPLANTATION THERAPY [None]
  - CANDIDIASIS [None]
  - DRUG EXPOSURE DURING PREGNANCY [None]
  - EJECTION FRACTION DECREASED [None]
  - LIVER DISORDER [None]
  - PREGNANCY [None]
  - SPLEEN DISORDER [None]
